FAERS Safety Report 7933506-9 (Version None)
Quarter: 2011Q4

REPORT INFORMATION
  Report Type: 
  Country: None (occurrence: None)
  Receive Date: 20111122
  Receipt Date: 20110926
  Transmission Date: 20120403
  Serious: No
  Sender: FDA-Public Use
  Company Number: US-BAYER-2011-015950

PATIENT
  Age: 85 Year
  Sex: Male
  Weight: 68 kg

DRUGS (7)
  1. IRON SUPPLEMENT [Concomitant]
  2. ALEVE (CAPLET) [Suspect]
     Dosage: 1 TAB ONCE DAILY
     Dates: start: 20050101
  3. ALEVE (CAPLET) [Suspect]
     Indication: PAIN
     Dosage: DAILY
     Route: 048
     Dates: start: 20101210
  4. GLUCOSAMINE [Concomitant]
  5. MULTIVITAMINS WITH IRON [VIT C,B12,D2,B3,P+,B6,RETINOL,B2,B1 HCL,V [Concomitant]
  6. ASCORBIC ACID [Concomitant]
  7. CALCIUM D [Concomitant]

REACTIONS (1)
  - NO ADVERSE EVENT [None]
